FAERS Safety Report 16970739 (Version 1)
Quarter: 2019Q4

REPORT INFORMATION
  Report Type: Spontaneous
  Country: US (occurrence: US)
  Receive Date: 20191029
  Receipt Date: 20191029
  Transmission Date: 20200122
  Serious: No
  Sender: FDA-Public Use
  Company Number: US-ANIPHARMA-2019-US-004155

PATIENT
  Age: 79 Year
  Sex: Female
  Weight: 50.35 kg

DRUGS (2)
  1. DIPHENOXYLATE HYDROCHLORIDE + ATROPINE SULFATE (NON-SPECIFIC) [Suspect]
     Active Substance: ATROPINE SULFATE\DIPHENOXYLATE HYDROCHLORIDE
     Indication: DIARRHOEA
     Dosage: 2.SMG, 2 TABLETS 4 TIMES A DAY AS NEEDED BY MOUTH THEN 2 TABLETS TWICE A DAY
     Dates: start: 20170515
  2. DIPHENOXYLATE HYDROCHLORIDE + ATROPINE SULFATE [Suspect]
     Active Substance: ATROPINE SULFATE\DIPHENOXYLATE HYDROCHLORIDE
     Dosage: 2.SMG, 2 TABLETS 4 TIMES A DAY AS NEEDED BY MOUTH THEN 2 TABLETS TWICE A DAY
     Dates: start: 20170515, end: 20171203

REACTIONS (1)
  - Drug ineffective [Unknown]

NARRATIVE: CASE EVENT DATE: 201705
